FAERS Safety Report 25369674 (Version 1)
Quarter: 2025Q2

REPORT INFORMATION
  Report Type: Spontaneous
  Country: CN (occurrence: CN)
  Receive Date: 20250528
  Receipt Date: 20250528
  Transmission Date: 20250716
  Serious: Yes (Other)
  Sender: ELI LILLY AND COMPANY
  Company Number: CN-ELI_LILLY_AND_COMPANY-CN202505015266

PATIENT
  Age: 40 Year
  Sex: Female

DRUGS (2)
  1. ABEMACICLIB [Suspect]
     Active Substance: ABEMACICLIB
     Indication: Breast cancer
     Dosage: 150 MG, BID
     Route: 048
     Dates: start: 20250505, end: 20250516
  2. TOREMIFENE [Concomitant]
     Active Substance: TOREMIFENE
     Indication: Product used for unknown indication

REACTIONS (5)
  - Haematemesis [Unknown]
  - Feeding disorder [Unknown]
  - Abdominal discomfort [Unknown]
  - Nausea [Unknown]
  - Vomiting [Unknown]
